FAERS Safety Report 7419850-2 (Version None)
Quarter: 2011Q2

REPORT INFORMATION
  Report Type: 
  Country: None (occurrence: None)
  Receive Date: 20110418
  Receipt Date: 20110407
  Transmission Date: 20111010
  Serious: Yes (Hospitalization, Other)
  Sender: FDA-Public Use
  Company Number: US-AMGEN-USASP2011018765

PATIENT
  Age: 75 Year
  Sex: Female

DRUGS (2)
  1. ENBREL [Suspect]
     Indication: RHEUMATOID ARTHRITIS
     Dosage: 25 MG, 2 TIMES/WK
     Dates: start: 20040601
  2. ENBREL [Suspect]
     Indication: OSTEOARTHRITIS

REACTIONS (11)
  - PULMONARY THROMBOSIS [None]
  - DYSPNOEA [None]
  - CARPAL TUNNEL SYNDROME [None]
  - THERAPEUTIC RESPONSE DECREASED [None]
  - ARTHROPATHY [None]
  - SPINAL FUSION SURGERY [None]
  - MOBILITY DECREASED [None]
  - ARTHRITIS [None]
  - FATIGUE [None]
  - OSTEOARTHRITIS [None]
  - PAIN IN EXTREMITY [None]
